FAERS Safety Report 8539938-2 (Version None)
Quarter: 2012Q3

REPORT INFORMATION
  Report Type: 
  Country: None (occurrence: None)
  Receive Date: 20120726
  Receipt Date: 20120723
  Transmission Date: 20120928
  Serious: Yes (Other)
  Sender: FDA-Public Use
  Company Number: JP-PFIZER INC-2012177888

PATIENT
  Sex: Female

DRUGS (1)
  1. LYRICA [Suspect]
     Indication: ABDOMINAL PAIN UPPER
     Route: 048

REACTIONS (3)
  - ATROPHY [None]
  - EUPHORIC MOOD [None]
  - AMNESIA [None]
